FAERS Safety Report 9867134 (Version 1)
Quarter: 2014Q1

REPORT INFORMATION
  Report Type: Spontaneous
  Country: US (occurrence: None)
  Receive Date: 20140131
  Receipt Date: 20140131
  Transmission Date: 20141002
  Serious: Yes (Death)
  Sender: FDA-Public Use
  Company Number: UTC-043922

PATIENT
  Age: 67 Year
  Sex: Female

DRUGS (10)
  1. TYVASO (6 MICGROGRAM, AEROSOL FOR INHALATION) (TREPROSTINIL SODIUM) [Suspect]
     Indication: COR PULMONALE CHRONIC
     Dosage: 216 MCG (54 MCG, 4 IN 1 D), INHALATION
     Route: 055
     Dates: start: 20110309
  2. TRACLEER (BOSENTAN) [Concomitant]
  3. PLAVIX (CLOPIDOGREL) [Concomitant]
  4. BETAPACE (SOTALOL HYDROCHLORIDE) [Concomitant]
  5. PREDNISONE [Concomitant]
  6. TEMAZEPAM (UNKNOWN) [Concomitant]
  7. HYDROCHLOROTHIAZIDE [Concomitant]
  8. TORASEMIDE (UNKNOWN) [Concomitant]
  9. AVAPRO (IRBESARTAN) [Concomitant]
  10. ONDANSERTRON (UNKNOWN) [Concomitant]

REACTIONS (1)
  - Oxygen saturation decreased [None]
